FAERS Safety Report 4423359-8 (Version None)
Quarter: 2004Q3

REPORT INFORMATION
  Report Type: 
  Country: None (occurrence: None)
  Receive Date: 20040806
  Receipt Date: 20040720
  Transmission Date: 20050211
  Serious: Yes (Hospitalization, Disabling)
  Sender: FDA-Public Use
  Company Number: K200401089

PATIENT
  Age: 72 Year
  Sex: Male
  Weight: 73 kg

DRUGS (9)
  1. ADRENALIN CHLORIDE SOLUTION (EPINEPHRINE) INHALER, 50.05MG/KG [Suspect]
     Dosage: 50.05 MG/KG/MIN, INTRAVENOUS
     Route: 042
     Dates: start: 20040310, end: 20040315
  2. CLEVELOX (CLEVIDIPINE) INFUSION, 1.2MG [Suspect]
     Indication: HYPERTENSION
     Dosage: 1.2 MG, INTRAVENOUS
     Route: 042
     Dates: start: 20040310, end: 20040310
  3. MORPHINE [Suspect]
     Dosage: 2 MG, INTRAVENOUS
     Route: 042
     Dates: start: 20040310
  4. DOPAMINE (DOPAMINE) 5MCG/KG [Suspect]
     Dosage: 5 MCG/KG/MIN, INTRAVENOUS
     Route: 042
     Dates: start: 20040310, end: 20040317
  5. AMIODARONE HCL [Concomitant]
  6. PROPOFOL [Concomitant]
  7. NITROGLYCERIN ^A.L.^ (GLYCERYL TRINITRATE) [Concomitant]
  8. INSULIN [Concomitant]
  9. POTASSIUM CHLORIDE [Concomitant]

REACTIONS (5)
  - AGITATION [None]
  - CONFUSIONAL STATE [None]
  - DELIRIUM [None]
  - RESPIRATORY FAILURE [None]
  - SPUTUM ABNORMAL [None]
